FAERS Safety Report 9433769 (Version 1)
Quarter: 2013Q3

REPORT INFORMATION
  Report Type: Spontaneous
  Country: US (occurrence: US)
  Receive Date: 20130731
  Receipt Date: 20130731
  Transmission Date: 20140515
  Serious: Yes (Other)
  Sender: FDA-Public Use
  Company Number: CHPA2013US011890

PATIENT
  Age: 72 Year
  Sex: Female

DRUGS (4)
  1. BENEFIBER W/ WHEAT DEXTRIN [Suspect]
     Indication: CONSTIPATION PROPHYLAXIS
     Dosage: 1 LID FULL, BID
     Route: 048
  2. BENEFIBER W/ WHEAT DEXTRIN [Suspect]
     Dosage: 1 LID FULL, QD
     Route: 048
  3. BENEFIBER W/ WHEAT DEXTRIN [Suspect]
     Dosage: 2 TSP, TID
     Route: 048
  4. INSULIN [Concomitant]
     Indication: DIABETES MELLITUS
     Dosage: UNK, UNK

REACTIONS (7)
  - Intestinal obstruction [Unknown]
  - Abdominal discomfort [Unknown]
  - Diarrhoea [Unknown]
  - Malaise [Unknown]
  - Therapeutic response unexpected [Unknown]
  - Off label use [Unknown]
  - Incorrect dose administered [Unknown]
